FAERS Safety Report 9126587 (Version 1)
Quarter: 2013Q1

REPORT INFORMATION
  Report Type: Spontaneous
  Country: US (occurrence: US)
  Receive Date: 20130117
  Receipt Date: 20130117
  Transmission Date: 20140127
  Serious: No
  Sender: FDA-Public Use
  Company Number: US-BAYER-2013-006061

PATIENT
  Age: 77 Year
  Sex: Female
  Weight: 77 kg

DRUGS (4)
  1. ALEVE CAPLET/TABLET,MIDOL EXTENDED RELIEF CAPLET [Suspect]
     Dosage: 1 DF, QD
     Route: 048
     Dates: start: 20130104, end: 20130105
  2. ANTIHYPERTENSIVES [Concomitant]
  3. INSULIN [Concomitant]
  4. AMLODIPINE [Concomitant]

REACTIONS (1)
  - Tension headache [Recovered/Resolved]
